FAERS Safety Report 9820501 (Version 2)
Quarter: 2014Q2

REPORT INFORMATION
  Report Type: Spontaneous
  Country: US (occurrence: None)
  Receive Date: 20131028
  Receipt Date: 20140519
  Transmission Date: 20141212
  Serious: Yes (Other)
  Sender: FDA-Public Use
  Company Number: 2013US001764

PATIENT
  Age: 52 Year
  Sex: Male
  Weight: 112 kg

DRUGS (1)
  1. ICLUSIG [Suspect]
     Indication: CHRONIC MYELOID LEUKAEMIA
     Route: 048
     Dates: start: 20130530, end: 20130604

REACTIONS (7)
  - Pancreatitis [None]
  - Gastric perforation [None]
  - Gingival bleeding [None]
  - Abdominal pain [None]
  - Hypertension [None]
  - Rash erythematous [None]
  - Rash maculovesicular [None]
